FAERS Safety Report 8444635-8 (Version None)
Quarter: 2012Q2

REPORT INFORMATION
  Report Type: 
  Country: None (occurrence: None)
  Receive Date: 20120618
  Receipt Date: 20120618
  Transmission Date: 20120825
  Serious: Yes (Death)
  Sender: FDA-Public Use
  Company Number: US-PFIZER INC-2004235693US

PATIENT
  Age: 40 Year

DRUGS (3)
  1. CALAN [Suspect]
     Dosage: UNK
  2. COCAINE [Suspect]
     Dosage: UNK
  3. VENLAFAXINE HCL [Suspect]
     Dosage: UNK

REACTIONS (2)
  - COMPLETED SUICIDE [None]
  - INTENTIONAL OVERDOSE [None]
